FAERS Safety Report 10161075 (Version 2)
Quarter: 2014Q2

REPORT INFORMATION
  Report Type: Spontaneous
  Country: US (occurrence: US)
  Receive Date: 20140508
  Receipt Date: 20140611
  Transmission Date: 20141212
  Serious: No
  Sender: FDA-Public Use
  Company Number: US-PFIZER INC-2014122842

PATIENT
  Age: 69 Year
  Sex: Female
  Weight: 56 kg

DRUGS (1)
  1. ADVIL [Suspect]
     Indication: PAIN
     Dosage: UNK, 4X/DAY
     Route: 048
     Dates: start: 201404, end: 2014

REACTIONS (2)
  - Eyelid oedema [Not Recovered/Not Resolved]
  - Eyelid skin dryness [Not Recovered/Not Resolved]
